FAERS Safety Report 20194066 (Version 1)
Quarter: 2021Q4

REPORT INFORMATION
  Report Type: Report from Study
  Country: ES (occurrence: ES)
  Receive Date: 20211216
  Receipt Date: 20211216
  Transmission Date: 20220304
  Serious: Yes (Hospitalization, Other)
  Sender: FDA-Public Use
  Company Number: ES-PFIZER INC-2019069998

PATIENT
  Age: 60 Year
  Sex: Male
  Weight: 61 kg

DRUGS (20)
  1. SUNITINIB [Suspect]
     Active Substance: SUNITINIB
     Indication: Renal cell carcinoma
     Dosage: 50 MG, CYCLIC (4 WEEKS ON/ 2 WEEKS OFF)
     Dates: start: 201803, end: 201808
  2. NIVOLUMAB [Suspect]
     Active Substance: NIVOLUMAB
     Indication: Renal cell carcinoma
     Dosage: 240 MG, CYCLIC (EVERY 2 WEEKS)
     Dates: start: 201808, end: 201809
  3. METOCLOPRAMIDE [Concomitant]
     Active Substance: METOCLOPRAMIDE
     Indication: Vomiting
     Dosage: UNK
     Dates: start: 201803, end: 201806
  4. RANITIDINE [Concomitant]
     Active Substance: RANITIDINE
     Indication: Premedication
     Dosage: UNK
     Dates: start: 201809, end: 201809
  5. OMEPRAZOLE [Concomitant]
     Active Substance: OMEPRAZOLE
     Indication: Neoplasm progression
     Dosage: UNK
     Dates: start: 201809
  6. DEXAMETHASONE [Concomitant]
     Active Substance: DEXAMETHASONE
     Indication: Neoplasm progression
     Dosage: UNK
     Dates: start: 201809
  7. ASPIRIN [Concomitant]
     Active Substance: ASPIRIN
     Indication: Hypersensitivity
     Dosage: UNK
     Dates: start: 201809, end: 201809
  8. PRIMPERAN [Concomitant]
     Active Substance: METOCLOPRAMIDE HYDROCHLORIDE
     Indication: Nausea
     Dosage: UNK
     Dates: start: 201809
  9. HYDROCORTISONE [Concomitant]
     Active Substance: HYDROCORTISONE
     Indication: Hypersensitivity
     Dosage: UNK
     Dates: start: 201808, end: 201808
  10. MEDEBIOTIN [Concomitant]
     Indication: Neoplasm progression
     Dosage: UNK
     Dates: start: 201809
  11. IRON [Concomitant]
     Active Substance: IRON
     Indication: Anaemia
     Dosage: UNK
     Dates: start: 201808
  12. MONTELUKAST [Concomitant]
     Active Substance: MONTELUKAST SODIUM
     Indication: Premedication
     Dosage: UNK
     Dates: start: 201809, end: 201809
  13. ACETAMINOPHEN [Concomitant]
     Active Substance: ACETAMINOPHEN
     Indication: Pyrexia
     Dosage: UNK
     Dates: start: 201803, end: 201805
  14. ACETAMINOPHEN [Concomitant]
     Active Substance: ACETAMINOPHEN
     Indication: Pain
     Dosage: UNK
     Dates: start: 201806, end: 201807
  15. CETIRIZINA (CETIREX) [Concomitant]
     Indication: Premedication
     Dosage: UNK
     Dates: start: 201809, end: 201809
  16. LOSARTAN [Concomitant]
     Active Substance: LOSARTAN
     Indication: Hypertension
     Dosage: UNK
     Dates: start: 201805
  17. METAMIZOLE MAGNESIUM [Concomitant]
     Active Substance: METAMIZOLE MAGNESIUM
     Indication: Pain
     Dosage: UNK
     Dates: start: 201808
  18. ZOLEDRONIC ACID [Concomitant]
     Active Substance: ZOLEDRONIC ACID
     Indication: Metastases to bone
     Dosage: UNK
     Dates: start: 201808, end: 201809
  19. CHLORPHENIRAMINE MALEATE [Concomitant]
     Active Substance: CHLORPHENIRAMINE MALEATE
     Indication: Hypersensitivity
     Dosage: UNK
     Dates: start: 201808, end: 201808
  20. TAMSULOSIN HYDROCHLORIDE [Concomitant]
     Active Substance: TAMSULOSIN HYDROCHLORIDE
     Indication: Product used for unknown indication
     Dosage: UNK
     Dates: start: 201809

REACTIONS (2)
  - Urinary retention [Recovered/Resolved]
  - Asthenia [Not Recovered/Not Resolved]

NARRATIVE: CASE EVENT DATE: 20180503
